FAERS Safety Report 16431646 (Version 2)
Quarter: 2019Q2

REPORT INFORMATION
  Report Type: Report from Study
  Country: EG (occurrence: EG)
  Receive Date: 20190614
  Receipt Date: 20190618
  Transmission Date: 20190711
  Serious: Yes (Death, Hospitalization, Other)
  Sender: FDA-Public Use
  Company Number: EG-009507513-1905EGY002458

PATIENT
  Age: 77 Year
  Sex: Female
  Weight: 56 kg

DRUGS (10)
  1. TAMOXIFEN [Concomitant]
     Active Substance: TAMOXIFEN
     Dosage: 20 (UNITS UNKNOWN) ,ONCE DAILY
  2. PEMBROLIZUMAB. [Suspect]
     Active Substance: PEMBROLIZUMAB
     Indication: NON-SMALL CELL LUNG CANCER
     Dosage: 200 MILLIGRAM, Q3W, STRENGTH: 100 MG
     Route: 042
     Dates: start: 20190430, end: 20190430
  3. LASIX [Concomitant]
     Active Substance: FUROSEMIDE
     Dosage: 125 MILLIGRAM, QD
  4. OMEPRAZOLE. [Concomitant]
     Active Substance: OMEPRAZOLE
     Dosage: 20 MILLIGRAM, QD
  5. EZETROL [Concomitant]
     Active Substance: EZETIMIBE
     Dosage: 10 MILLIGRAM, QD
  6. NOVO-NORM [Concomitant]
     Active Substance: REPAGLINIDE
     Dosage: 2 MILLIGRAM, TID
  7. STAGID [Concomitant]
     Active Substance: METFORMIN PAMOATE
     Dosage: 700 (UNITS UNKNOWN), TWICE DAILY
  8. XGEVA [Concomitant]
     Active Substance: DENOSUMAB
     Dosage: UNK
     Dates: start: 20190430
  9. ALDACTONE (CANRENOATE POTASSIUM) [Concomitant]
     Active Substance: CANRENOATE POTASSIUM
     Dosage: 50 MILLIGRAM, QD
  10. WARFARIN [Concomitant]
     Active Substance: WARFARIN
     Dosage: 3 MILLIGRAM, QD

REACTIONS (6)
  - Hypotension [Fatal]
  - Feeding disorder [Fatal]
  - Alkalosis [Unknown]
  - Death [Fatal]
  - Fatigue [Fatal]
  - Pyrexia [Not Recovered/Not Resolved]

NARRATIVE: CASE EVENT DATE: 20190501
